FAERS Safety Report 24936626 (Version 4)
Quarter: 2025Q2

REPORT INFORMATION
  Report Type: Spontaneous
  Country: AU (occurrence: AU)
  Receive Date: 20250206
  Receipt Date: 20250502
  Transmission Date: 20250717
  Serious: Yes (Hospitalization, Other)
  Sender: PFIZER
  Company Number: AU-MLMSERVICE-20250127-PI350843-00218-1

PATIENT
  Age: 73 Year
  Sex: Male

DRUGS (2)
  1. METHOTREXATE SODIUM [Suspect]
     Active Substance: METHOTREXATE SODIUM
     Indication: Crohn^s disease
     Dosage: 10 MG, WEEKLY
  2. INFLIXIMAB [Suspect]
     Active Substance: INFLIXIMAB
     Indication: Crohn^s disease

REACTIONS (5)
  - Epstein Barr virus positive mucocutaneous ulcer [Recovered/Resolved]
  - Gastrointestinal haemorrhage [Recovered/Resolved]
  - Iron deficiency anaemia [Recovered/Resolved]
  - Haemodynamic instability [Recovered/Resolved]
  - Off label use [Unknown]
